FAERS Safety Report 9332430 (Version 1)
Quarter: 2013Q2

REPORT INFORMATION
  Report Type: Spontaneous
  Country: GB (occurrence: GB)
  Receive Date: 20130606
  Receipt Date: 20130606
  Transmission Date: 20140414
  Serious: Yes (Other)
  Sender: FDA-Public Use
  Company Number: GB-ACCORD-017868

PATIENT
  Age: 33 Year
  Sex: Female

DRUGS (5)
  1. NALTREXONE [Suspect]
     Indication: DRUG WITHDRAWAL MAINTENANCE THERAPY
     Route: 048
     Dates: start: 20130320, end: 20130325
  2. ZOPICLONE [Concomitant]
     Indication: DRUG WITHDRAWAL SYNDROME
     Route: 048
     Dates: start: 20130304, end: 20130311
  3. BUSCOPAN [Concomitant]
     Indication: DRUG WITHDRAWAL SYNDROME
     Dates: start: 20130304, end: 20130311
  4. HEROIN [Concomitant]
     Indication: DRUG WITHDRAWAL SYNDROME
  5. DIAZEPAM [Concomitant]
     Indication: DRUG WITHDRAWAL SYNDROME
     Route: 048
     Dates: start: 20130304, end: 20130311

REACTIONS (3)
  - Blister [Not Recovered/Not Resolved]
  - Pruritus [Not Recovered/Not Resolved]
  - Eyelid oedema [Not Recovered/Not Resolved]
